FAERS Safety Report 5618548-0 (Version None)
Quarter: 2008Q1

REPORT INFORMATION
  Report Type: 
  Country: None (occurrence: None)
  Receive Date: 20080207
  Receipt Date: 20080125
  Transmission Date: 20080703
  Serious: Yes (Other)
  Sender: FDA-Public Use
  Company Number: FI-AMGEN-UK262879

PATIENT

DRUGS (2)
  1. MIMPARA [Suspect]
     Indication: DRUG USE FOR UNKNOWN INDICATION
     Route: 048
  2. IMMUNOSUPPRESSANTS [Interacting]
     Route: 065

REACTIONS (3)
  - DRUG INTERACTION [None]
  - KIDNEY TRANSPLANT REJECTION [None]
  - LUNG DISORDER [None]
